FAERS Safety Report 17728053 (Version 4)
Quarter: 2020Q3

REPORT INFORMATION
  Report Type: Spontaneous
  Country: US (occurrence: US)
  Receive Date: 20200430
  Receipt Date: 20200812
  Transmission Date: 20201102
  Serious: Yes (Other)
  Sender: FDA-Public Use
  Company Number: US-GLAXOSMITHKLINE-US2020072795

PATIENT
  Age: 69 Year
  Sex: Female

DRUGS (1)
  1. VENTOLIN HFA [Suspect]
     Active Substance: ALBUTEROL SULFATE
     Indication: PRODUCT USED FOR UNKNOWN INDICATION
     Dosage: 1 PUFF(S) PRN
     Route: 055

REACTIONS (8)
  - Product complaint [Unknown]
  - Loss of consciousness [Unknown]
  - Head discomfort [Unknown]
  - Foreign body in respiratory tract [Unknown]
  - Anxiety [Unknown]
  - Syncope [Unknown]
  - Headache [Not Recovered/Not Resolved]
  - Dysstasia [Unknown]

NARRATIVE: CASE EVENT DATE: 20200428
